FAERS Safety Report 6746242-1 (Version None)
Quarter: 2010Q2

REPORT INFORMATION
  Report Type: 
  Country: None (occurrence: None)
  Receive Date: 20100528
  Receipt Date: 20100219
  Transmission Date: 20101027
  Serious: No
  Sender: FDA-Public Use
  Company Number: US-ASTRAZENECA-2010SE07484

PATIENT
  Sex: Female
  Weight: 70.8 kg

DRUGS (18)
  1. PRILOSEC [Suspect]
     Route: 048
  2. SEROQUEL [Concomitant]
  3. TOPROL-XL [Concomitant]
  4. LISINOPRIL AND HYDROCHLOROTHIAZIDE [Concomitant]
  5. SYNTHROID [Concomitant]
  6. PLAVIX [Concomitant]
  7. CYMBALTA [Concomitant]
  8. XANAX [Concomitant]
  9. PRAVASTATIN [Concomitant]
  10. ADDEREX [Concomitant]
  11. LORTAB [Concomitant]
  12. VITAMINS [Concomitant]
  13. FISH OIL [Concomitant]
  14. CA+ [Concomitant]
  15. VITAMINE D [Concomitant]
  16. IRON [Concomitant]
  17. ALLEGRA [Concomitant]
  18. FLONASE [Concomitant]

REACTIONS (2)
  - DRUG INEFFECTIVE [None]
  - INCORRECT DOSE ADMINISTERED [None]
